FAERS Safety Report 8085151-5 (Version None)
Quarter: 2012Q1

REPORT INFORMATION
  Report Type: 
  Country: None (occurrence: None)
  Receive Date: 20120128
  Receipt Date: 20110315
  Transmission Date: 20120608
  Serious: No
  Sender: FDA-Public Use
  Company Number: US-ABBOTT-11P-163-0711597-00

PATIENT
  Age: 29 Year
  Sex: Female

DRUGS (1)
  1. HUMIRA [Suspect]
     Indication: PSORIASIS
     Dosage: 2-PENS 40 MG EACH DAY ONE (80MG) INITIAL DOSE
     Route: 058
     Dates: start: 20110315

REACTIONS (1)
  - INJECTION SITE PAIN [None]
